FAERS Safety Report 14271198 (Version 2)
Quarter: 2018Q1

REPORT INFORMATION
  Report Type: Spontaneous
  Country: JP (occurrence: JP)
  Receive Date: 20171211
  Receipt Date: 20180131
  Transmission Date: 20180508
  Serious: Yes (Death)
  Sender: FDA-Public Use
  Company Number: JP-BAYER-2017-237106

PATIENT
  Age: 68 Year
  Sex: Male

DRUGS (7)
  1. FUROSEMIDE [FUROSEMIDE] [Concomitant]
     Active Substance: FUROSEMIDE
     Dosage: DAILY DOSE 40 MG
  2. BAYASPIRIN 100 MG [Suspect]
     Active Substance: ASPIRIN
     Indication: ANGINA PECTORIS
     Dosage: DAILY DOSE 100 MG
     Route: 048
  3. WARFARIN [Concomitant]
     Active Substance: WARFARIN
     Dosage: DAILY DOSE 3 MG
  4. FEBUXOSTAT. [Concomitant]
     Active Substance: FEBUXOSTAT
     Dosage: DAILY DOSE 40 MG
  5. ISOLEUCINE W/LEUCINE/VALINE [Concomitant]
     Active Substance: ISOLEUCINE\LEUCINE\VALINE
     Dosage: DAILY DOSE 6 G
  6. MICARDIS [Concomitant]
     Active Substance: TELMISARTAN
     Dosage: DAILY DOSE 40 MG
  7. MAINTATE [Concomitant]
     Active Substance: BISOPROLOL FUMARATE
     Dosage: DAILY DOSE 2.5 MG

REACTIONS (4)
  - Ventricular fibrillation [Fatal]
  - Ventricular tachycardia [Fatal]
  - Atrial fibrillation [Fatal]
  - Cardio-respiratory arrest [Fatal]

NARRATIVE: CASE EVENT DATE: 20170922
